FAERS Safety Report 19891300 (Version 1)
Quarter: 2021Q3

REPORT INFORMATION
  Report Type: Other
  Country: US (occurrence: US)
  Receive Date: 20210927
  Receipt Date: 20210927
  Transmission Date: 20211014
  Serious: Yes (Hospitalization, Other)
  Sender: FDA-Public Use
  Company Number: US-SAPTALIS PHARMACEUTICALS,LLC-000116

PATIENT
  Age: 40 Year
  Sex: Male
  Weight: 98.8 kg

DRUGS (8)
  1. ER POTASSIUM CHLORIDE (AVKARE INC) [Suspect]
     Active Substance: POTASSIUM CHLORIDE
     Indication: HYPOKALAEMIA
     Dosage: 40 MEQ OF ER POTASSIUM CHLORIDE POST OPERATIVE(PO) X 2 PLUS 20 MEQ PO X 1
     Route: 048
  2. ER POTASSIUM CHLORIDE (AVKARE INC) [Suspect]
     Active Substance: POTASSIUM CHLORIDE
     Indication: HYPOKALAEMIA
     Dosage: 40 MEQ OF ER POTASSIUM CHLORIDE PO X 2
     Route: 048
  3. IV POTASSIUM CHLORIDE (BAXTER INC) [Suspect]
     Active Substance: POTASSIUM CHLORIDE
     Indication: HYPOKALAEMIA
     Dosage: 20 MEQ OF INTRAVENOUS POTASSIUM CHLORIDE
     Route: 042
  4. HOSPIRA [Concomitant]
     Indication: PRODUCT USED FOR UNKNOWN INDICATION
     Dosage: 2 G IV X 1 DOSE ON POSTOPERATIVE DAY 3 AND 5
     Route: 042
  5. ER POTASSIUM CHLORIDE (AVKARE INC) [Suspect]
     Active Substance: POTASSIUM CHLORIDE
     Indication: HYPOKALAEMIA
     Dosage: 40 MEQ OF ER POTASSIUM CHLORIDE POST OPERATIVE(PO) X 2 PLUS 20 MEQ PO X 1
     Route: 048
  6. IMODIUM [Concomitant]
     Active Substance: LOPERAMIDE HYDROCHLORIDE
     Indication: STOMA SITE DISCHARGE
     Dosage: 2 MG EVERY 4 HOURS
     Route: 048
  7. ZOSYN [Concomitant]
     Active Substance: PIPERACILLIN SODIUM\TAZOBACTAM SODIUM
     Indication: SEPSIS
     Dosage: 3.375 G IV EVERY 6 HOURS
     Route: 042
  8. ER POTASSIUM CHLORIDE (AVKARE INC) [Suspect]
     Active Substance: POTASSIUM CHLORIDE
     Indication: HYPOKALAEMIA
     Dosage: 40 MEQ OF ER POTASSIUM CHLORIDE POST OPERATIVE(PO) X 2 PLUS 20 MEQ PO X 1
     Route: 048

REACTIONS (3)
  - Therapy non-responder [Recovered/Resolved]
  - Hypokalaemia [Recovered/Resolved]
  - Malabsorption [Recovered/Resolved]
